FAERS Safety Report 15207663 (Version 1)
Quarter: 2018Q3

REPORT INFORMATION
  Report Type: Spontaneous
  Country: US (occurrence: US)
  Receive Date: 20180727
  Receipt Date: 20180727
  Transmission Date: 20181010
  Serious: No
  Sender: FDA-Public Use
  Company Number: US-ALLERGAN-1828862US

PATIENT
  Age: 22 Year
  Sex: Male

DRUGS (3)
  1. DESMOPRESSIN [Concomitant]
     Active Substance: DESMOPRESSIN
     Indication: HYPOTHALAMO-PITUITARY DISORDER
     Dosage: UNK
     Route: 065
  2. LEVOTHYROXINE. [Concomitant]
     Active Substance: LEVOTHYROXINE
     Indication: SECONDARY HYPOTHYROIDISM
     Dosage: UNK
     Route: 065
  3. ANDRODERM [Suspect]
     Active Substance: TESTOSTERONE
     Indication: ANDROGEN DEFICIENCY
     Dosage: UNK
     Route: 062

REACTIONS (3)
  - Application site pruritus [Unknown]
  - Wrong technique in product usage process [Unknown]
  - Product adhesion issue [Unknown]
